FAERS Safety Report 9840156 (Version 1)
Quarter: 2013Q4

REPORT INFORMATION
  Report Type: Spontaneous
  Country: US (occurrence: None)
  Receive Date: 20131211
  Receipt Date: 20131211
  Transmission Date: 20140711
  Serious: No
  Sender: FDA-Public Use
  Company Number: ALL1-2013-01341

PATIENT
  Age: 70 Year
  Sex: Female
  Weight: 57.6 kg

DRUGS (10)
  1. FIRAZYR [Suspect]
     Indication: ENZYME LEVEL DECREASED
     Dosage: 30 MG, AS REQ^D, SUBCUTANEOUOS
     Route: 058
     Dates: start: 20130126
  2. PROTONIX (PANTOPRAZOLE SODIUM SESQUIHYDRATE) [Concomitant]
  3. AMLODIPINE (AMLODIPINE) [Concomitant]
  4. TRAMADOL (TRAMADOL) [Concomitant]
  5. GABAPENTIN (GABAPENTIN) [Concomitant]
  6. PENICILLIN /00000901/ (BENZYYPENICILLIN) [Concomitant]
  7. GLIMEPIRIDE (GLIMEPIRIDE) [Concomitant]
  8. TRAZODONE (TRAZODONE) [Concomitant]
  9. QUINAPRIL (QUINAPRIL) [Concomitant]
  10. IBUPROFEN (IBUPROFEN) [Concomitant]

REACTIONS (1)
  - Injection site pain [None]
